FAERS Safety Report 12379382 (Version 1)
Quarter: 2016Q2

REPORT INFORMATION
  Report Type: Spontaneous
  Country: US (occurrence: US)
  Receive Date: 20160517
  Receipt Date: 20160517
  Transmission Date: 20160815
  Serious: No
  Sender: FDA-Public Use
  Company Number: US-RELYPSA-RLY2016000422

PATIENT

DRUGS (8)
  1. EPOGEN [Concomitant]
     Active Substance: ERYTHROPOIETIN
  2. IRON                               /00023503/ [Concomitant]
     Active Substance: IRON
  3. SODIUM BICARBONATE. [Concomitant]
     Active Substance: SODIUM BICARBONATE
  4. LISINOPRIL. [Concomitant]
     Active Substance: LISINOPRIL
  5. PARICALCITOL. [Concomitant]
     Active Substance: PARICALCITOL
  6. VELTASSA [Suspect]
     Active Substance: PATIROMER
     Indication: HYPERKALAEMIA
     Dosage: 8.4 G, QD
     Route: 048
     Dates: start: 20160322
  7. ALBUTEROL SULFATE. [Concomitant]
     Active Substance: ALBUTEROL SULFATE
  8. VITAMIN C                          /00008004/ [Concomitant]

REACTIONS (1)
  - Dyspepsia [Unknown]
